FAERS Safety Report 7481253-2 (Version None)
Quarter: 2011Q2

REPORT INFORMATION
  Report Type: 
  Country: None (occurrence: None)
  Receive Date: 20110512
  Receipt Date: 20110512
  Transmission Date: 20111010
  Serious: No
  Sender: FDA-Public Use
  Company Number: None

PATIENT
  Age: 52 Year
  Sex: Female
  Weight: 86.1834 kg

DRUGS (1)
  1. ANCEF [Suspect]
     Indication: SURGERY
     Dosage: 1GM IVPB 1X IV
     Route: 042
     Dates: start: 20110418

REACTIONS (3)
  - PRURITUS [None]
  - DYSPNOEA [None]
  - LARYNGEAL OEDEMA [None]
